FAERS Safety Report 16957604 (Version 2)
Quarter: 2019Q4

REPORT INFORMATION
  Report Type: Spontaneous
  Country: GR (occurrence: GR)
  Receive Date: 20191024
  Receipt Date: 20191031
  Transmission Date: 20200122
  Serious: Yes (Hospitalization)
  Sender: FDA-Public Use
  Company Number: GR-BAUSCH-BL-2019-058901

PATIENT
  Age: 63 Year
  Sex: Male

DRUGS (1)
  1. KYNTHEUM (BRODALUMAB) [Suspect]
     Active Substance: BRODALUMAB
     Indication: PSORIASIS
     Dosage: 210 MG, 0,1,2 THEN EVERY TWO WEEKS?SINCE LAST 6 MONTHS
     Route: 058

REACTIONS (1)
  - Encephalitis autoimmune [Recovering/Resolving]
